FAERS Safety Report 5242212-3 (Version None)
Quarter: 2007Q1

REPORT INFORMATION
  Report Type: 
  Country: None (occurrence: None)
  Receive Date: 20070213
  Receipt Date: 20070129
  Transmission Date: 20070707
  Serious: Yes (Hospitalization)
  Sender: FDA-Public Use
  Company Number: 236292

PATIENT
  Age: 79 Year
  Sex: Male

DRUGS (2)
  1. AVASTIN [Suspect]
     Indication: DRUG USE FOR UNKNOWN INDICATION
     Dosage: 0.02 ML, INTRAVITREAL
     Dates: start: 20061014, end: 20061014
  2. INDOMETHACIN [Suspect]
     Indication: DRUG USE FOR UNKNOWN INDICATION
     Dates: start: 20061018, end: 20061204

REACTIONS (1)
  - ULCERATIVE KERATITIS [None]
